FAERS Safety Report 5164733-4 (Version None)
Quarter: 2006Q4

REPORT INFORMATION
  Report Type: 
  Country: None (occurrence: None)
  Receive Date: 20061205
  Receipt Date: 20000329
  Transmission Date: 20070319
  Serious: Yes (Life-Threatening, Hospitalization)
  Sender: FDA-Public Use
  Company Number: FR-GLAXOSMITHKLINE-B0079757A

PATIENT
  Sex: Female
  Weight: 1.1 kg

DRUGS (12)
  1. ZIDOVUDINE [Suspect]
     Indication: ANTIVIRAL PROPHYLAXIS
     Dosage: 10MGML PER DAY
     Route: 048
     Dates: start: 19990708, end: 19990719
  2. RETROVIR [Suspect]
     Indication: HUMAN IMMUNODEFICIENCY VIRUS TRANSMISSION
     Route: 048
     Dates: start: 19990702, end: 19990810
  3. ZIDOVUDINE [Suspect]
     Indication: HIV INFECTION
     Dates: start: 19990702, end: 19990702
  4. SAQUINAVIR [Suspect]
  5. NORVIR [Suspect]
  6. STAVUDINE [Suspect]
     Indication: HIV INFECTION
  7. DIDANOSINE [Suspect]
     Indication: HIV INFECTION
  8. COTRIM D.S. [Concomitant]
  9. FLUCONAZOLE [Concomitant]
  10. NICARDIPINE HYDROCHLORIDE [Concomitant]
  11. CELESTENE [Concomitant]
     Indication: PREMATURE LABOUR
  12. SALBUTAMOL [Concomitant]

REACTIONS (10)
  - ALANINE AMINOTRANSFERASE INCREASED [None]
  - BLOOD CREATININE INCREASED [None]
  - DRUG EXPOSURE DURING PREGNANCY [None]
  - FOETAL DISTRESS SYNDROME [None]
  - NECROTISING COLITIS [None]
  - NECROTISING ENTEROCOLITIS NEONATAL [None]
  - PREMATURE BABY [None]
  - PREMATURE LABOUR [None]
  - SPEECH DISORDER DEVELOPMENTAL [None]
  - THROMBOCYTHAEMIA [None]
